FAERS Safety Report 7741250-6 (Version None)
Quarter: 2011Q3

REPORT INFORMATION
  Report Type: 
  Country: None (occurrence: None)
  Receive Date: 20110909
  Receipt Date: 20110902
  Transmission Date: 20111222
  Serious: Yes (Other)
  Sender: FDA-Public Use
  Company Number: PR-PFIZER INC-2005120206

PATIENT
  Sex: Female

DRUGS (1)
  1. LIPITOR [Suspect]
     Route: 065

REACTIONS (4)
  - LIMB DISCOMFORT [None]
  - DIARRHOEA [None]
  - CEREBROVASCULAR ACCIDENT [None]
  - VASCULAR DEMENTIA [None]
